FAERS Safety Report 5013722-9 (Version None)
Quarter: 2006Q2

REPORT INFORMATION
  Report Type: 
  Country: None (occurrence: None)
  Receive Date: 20060525
  Receipt Date: 20060504
  Transmission Date: 20061013
  Serious: Yes (Hospitalization)
  Sender: FDA-Public Use
  Company Number: US200605001078

PATIENT
  Sex: Female

DRUGS (2)
  1. FORTEO [Suspect]
     Dosage: 20 UG,
     Dates: start: 20060413, end: 20060427
  2. FORTEO [Concomitant]

REACTIONS (2)
  - ABDOMINAL PAIN [None]
  - BLOOD AMYLASE INCREASED [None]
